FAERS Safety Report 6539716-X (Version None)
Quarter: 2010Q1

REPORT INFORMATION
  Report Type: 
  Country: None (occurrence: None)
  Receive Date: 20100115
  Receipt Date: 20100108
  Transmission Date: 20100710
  Serious: Yes (Hospitalization)
  Sender: FDA-Public Use
  Company Number: US-SANOFI-AVENTIS-2010SA001953

PATIENT
  Sex: Male

DRUGS (1)
  1. LANTUS [Suspect]
     Indication: BLOOD GLUCOSE INCREASED
     Route: 065

REACTIONS (2)
  - CONVULSION [None]
  - PNEUMONIA [None]
